FAERS Safety Report 13608071 (Version 1)
Quarter: 2017Q2

REPORT INFORMATION
  Report Type: Spontaneous
  Country: US (occurrence: US)
  Receive Date: 20170602
  Receipt Date: 20170602
  Transmission Date: 20170830
  Serious: Yes (Other)
  Sender: FDA-Public Use
  Company Number: US-009507513-1705USA012667

PATIENT
  Sex: Male

DRUGS (2)
  1. ALBUTEROL. [Concomitant]
     Active Substance: ALBUTEROL
     Dosage: UNK
  2. ZEPATIER [Suspect]
     Active Substance: ELBASVIR\GRAZOPREVIR
     Indication: HEPATITIS C
     Dosage: 1 TABLET (50-100 MG) BY MOUTH EVERY DAY
     Route: 048
     Dates: start: 201704

REACTIONS (11)
  - Coma [Recovered/Resolved]
  - Ear infection [Unknown]
  - Ear disorder [Unknown]
  - Nausea [Unknown]
  - Syncope [Recovered/Resolved]
  - Head injury [Unknown]
  - Amnesia [Unknown]
  - Vertigo [Unknown]
  - Diarrhoea [Recovering/Resolving]
  - Adverse event [Not Recovered/Not Resolved]
  - Dizziness [Unknown]

NARRATIVE: CASE EVENT DATE: 2017
